FAERS Safety Report 5125685-6 (Version None)
Quarter: 2006Q4

REPORT INFORMATION
  Report Type: 
  Country: None (occurrence: None)
  Receive Date: 20061012
  Receipt Date: 20041116
  Transmission Date: 20070319
  Serious: Yes (Other)
  Sender: FDA-Public Use
  Company Number: PHFR2004GB04263

PATIENT
  Age: 20 Year
  Sex: Male

DRUGS (3)
  1. CLOZARIL [Suspect]
     Indication: SCHIZOPHRENIA
     Dosage: 25MG-300MG
     Route: 048
     Dates: start: 20000907, end: 20041118
  2. CLOZARIL [Suspect]
     Dosage: 6X100MG/OVERDOSE
     Dates: start: 20041101
  3. RISPERIDONE [Concomitant]

REACTIONS (10)
  - ARRHYTHMIA [None]
  - BLOOD PRESSURE DECREASED [None]
  - BLOOD PRESSURE INCREASED [None]
  - BUNDLE BRANCH BLOCK RIGHT [None]
  - HEART RATE INCREASED [None]
  - OVERDOSE [None]
  - PALPITATIONS [None]
  - SINUS TACHYCARDIA [None]
  - VENTRICULAR HYPERTROPHY [None]
  - VOMITING [None]
